FAERS Safety Report 6504750-2 (Version None)
Quarter: 2009Q4

REPORT INFORMATION
  Report Type: 
  Country: None (occurrence: None)
  Receive Date: 20091214
  Receipt Date: 20091204
  Transmission Date: 20100525
  Serious: Yes (Death, Hospitalization)
  Sender: FDA-Public Use
  Company Number: 2009S1000405

PATIENT
  Age: 54 Year
  Sex: Male

DRUGS (6)
  1. CUBICIN [Suspect]
     Indication: BACTERAEMIA
     Dosage: 900 MG; Q24H; IV
     Route: 042
     Dates: start: 20090811, end: 20090908
  2. FUROSEMIDE [Concomitant]
  3. INSULIN [Concomitant]
  4. PANTOPRAZOLE [Concomitant]
  5. TORSEMIDE [Concomitant]
  6. AMIODARONE HCL [Concomitant]

REACTIONS (1)
  - NO THERAPEUTIC RESPONSE [None]
